FAERS Safety Report 6617485-2 (Version None)
Quarter: 2010Q1

REPORT INFORMATION
  Report Type: 
  Country: None (occurrence: None)
  Receive Date: 20100308
  Receipt Date: 20100226
  Transmission Date: 20100710
  Serious: Yes (Death)
  Sender: FDA-Public Use
  Company Number: US-JNJFOC-20100211017

PATIENT
  Age: 32 Year
  Sex: Female
  Weight: 52.16 kg

DRUGS (14)
  1. ACETAMINOPHEN [Suspect]
     Indication: RESPIRATORY TRACT INFECTION
  2. ACETAMINOPHEN [Suspect]
     Indication: NASOPHARYNGITIS
  3. UNKNOWN MEDICATION [Suspect]
     Indication: CONVULSION
  4. HYDROCODONE [Suspect]
     Indication: RESPIRATORY TRACT INFECTION
  5. HYDROCODONE [Suspect]
     Indication: NASOPHARYNGITIS
  6. CHLORPHENIRAMINE MALEATE [Suspect]
     Indication: RESPIRATORY TRACT INFECTION
  7. CHLORPHENIRAMINE MALEATE [Suspect]
     Indication: NASOPHARYNGITIS
  8. METHAMPHETAMINE [Suspect]
     Indication: RESPIRATORY TRACT INFECTION
  9. METHAMPHETAMINE [Suspect]
     Indication: NASOPHARYNGITIS
  10. ANTIBIOTIC [Suspect]
     Indication: DRUG USE FOR UNKNOWN INDICATION
  11. DEXTROMETHORPHAN [Suspect]
     Indication: COUGH
  12. PROPRANOLOL HYDROCHLORIDE [Suspect]
     Indication: CARDIAC DISORDER
  13. PROZAC [Suspect]
     Indication: DRUG USE FOR UNKNOWN INDICATION
  14. VICOPROFEN [Concomitant]
     Indication: DYSMENORRHOEA

REACTIONS (8)
  - ACCIDENTAL DEATH [None]
  - ANAEMIA [None]
  - DEATH [None]
  - DRUG TOXICITY [None]
  - DYSMENORRHOEA [None]
  - FALL [None]
  - INFLUENZA LIKE ILLNESS [None]
  - PNEUMONIA [None]
